FAERS Safety Report 14780365 (Version 7)
Quarter: 2019Q1

REPORT INFORMATION
  Report Type: Spontaneous
  Country: ES (occurrence: ES)
  Receive Date: 20180419
  Receipt Date: 20190212
  Transmission Date: 20190417
  Serious: Yes (Death, Other)
  Sender: FDA-Public Use
  Company Number: ES-PFIZER INC-2018153605

PATIENT
  Age: 23 Year
  Sex: Male

DRUGS (21)
  1. DOXORUBICIN HCL [Suspect]
     Active Substance: DOXORUBICIN HYDROCHLORIDE
     Indication: ACUTE LYMPHOCYTIC LEUKAEMIA RECURRENT
     Dosage: UNK, CYCLIC (REGIMEN #1, FIRST CYCLE)
     Dates: start: 20140415
  2. FLUDARABINE [Suspect]
     Active Substance: FLUDARABINE PHOSPHATE
     Indication: ACUTE LYMPHOCYTIC LEUKAEMIA RECURRENT
     Dosage: UNK, CYCLIC (REGIMEN #1)
     Dates: start: 20140928
  3. DEXAMETHASONE. [Suspect]
     Active Substance: DEXAMETHASONE
     Dosage: UNK, CYCLIC (SECOND CYCLE)
     Dates: start: 2014
  4. THIOTEPA. [Suspect]
     Active Substance: THIOTEPA
     Indication: ACUTE LYMPHOCYTIC LEUKAEMIA RECURRENT
     Dosage: UNK, CYCLIC ((4 CYCLES) REGIMEN #1)
     Route: 065
     Dates: start: 20140928
  5. PONATINIB [Suspect]
     Active Substance: PONATINIB
     Dosage: SECOND CYCLE
     Dates: start: 2014
  6. CYTARABINE. [Suspect]
     Active Substance: CYTARABINE
     Dosage: UNK, CYCLIC (SECOND CYCLE)
     Dates: start: 2014
  7. ICLUSIG [Suspect]
     Active Substance: PONATINIB
     Indication: ACUTE LYMPHOCYTIC LEUKAEMIA RECURRENT
     Dosage: 45 MG, QD (REGIMEN #1, FIRST CYCLE)
     Route: 048
     Dates: start: 20140415
  8. VINCRISTINE SULFATE. [Suspect]
     Active Substance: VINCRISTINE SULFATE
     Indication: ACUTE LYMPHOCYTIC LEUKAEMIA RECURRENT
     Dosage: UNK UNK, CYCLIC (REGIMEN #1, FIRST CYCLE)
     Dates: start: 20140415
  9. VINCRISTINE SULFATE. [Suspect]
     Active Substance: VINCRISTINE SULFATE
     Dosage: UNK, SECOND CYCLE
     Dates: start: 2014
  10. GENOXAL [Suspect]
     Active Substance: CYCLOPHOSPHAMIDE
     Dosage: UNK UNK, CYCLIC (SECOND CYCLE)
     Dates: start: 2014
  11. METHOTREXATE SODIUM. [Suspect]
     Active Substance: METHOTREXATE SODIUM
     Indication: ACUTE LYMPHOCYTIC LEUKAEMIA RECURRENT
     Dosage: UNK, CYCLIC (REGIMEN #1, FIRST CYCLE)
     Dates: start: 20140415
  12. BUSULPHAN [Suspect]
     Active Substance: BUSULFAN
     Indication: ACUTE LYMPHOCYTIC LEUKAEMIA RECURRENT
     Dosage: UNK, CYCLIC (REGIMEN #1,)
     Dates: start: 20140928
  13. METHOTREXATE SODIUM. [Suspect]
     Active Substance: METHOTREXATE SODIUM
     Dosage: UNK, SECOND CYCLE
     Dates: start: 2014
  14. PONATINIB [Suspect]
     Active Substance: PONATINIB
     Indication: ACUTE LYMPHOCYTIC LEUKAEMIA RECURRENT
     Dosage: UNK
     Dates: start: 20140415
  15. GENOXAL [Suspect]
     Active Substance: CYCLOPHOSPHAMIDE
     Indication: ACUTE LYMPHOCYTIC LEUKAEMIA RECURRENT
     Dosage: UNK, REGIMEN #1, FIRST CYCLE
     Dates: start: 20140414
  16. CYTARABINE. [Suspect]
     Active Substance: CYTARABINE
     Indication: ACUTE LYMPHOCYTIC LEUKAEMIA RECURRENT
     Dosage: UNK, CYCLIC (REGIMEN #1, FIRST CYCLE)
     Dates: start: 20140415
  17. DOXORUBICIN HCL [Suspect]
     Active Substance: DOXORUBICIN HYDROCHLORIDE
     Dosage: UNK, CYCLIC (SECOND CYCLE)
     Dates: start: 2014
  18. RITUXIMAB. [Suspect]
     Active Substance: RITUXIMAB
     Indication: ACUTE LYMPHOCYTIC LEUKAEMIA RECURRENT
     Dosage: UNK, CYCLIC (REGIMEN #1, FIRST CYCLE)
  19. PONATINIB [Suspect]
     Active Substance: PONATINIB
     Dosage: AFTER HEMATOPOIETIC STEM CELL TRANSPLANTATION
     Dates: start: 2014
  20. DEXAMETHASONE. [Suspect]
     Active Substance: DEXAMETHASONE
     Indication: ACUTE LYMPHOCYTIC LEUKAEMIA RECURRENT
     Dosage: UNK UNK, CYCLIC (REGIMEN #1, FIRST CYCLE)
     Dates: start: 20140415
  21. CYCLOPHOSPHAMIDE. [Suspect]
     Active Substance: CYCLOPHOSPHAMIDE
     Indication: ACUTE LYMPHOCYTIC LEUKAEMIA RECURRENT
     Dosage: UNK
     Dates: start: 20140415

REACTIONS (8)
  - Post transplant lymphoproliferative disorder [Recovered/Resolved]
  - Multiple organ dysfunction syndrome [Fatal]
  - Epstein-Barr virus infection [Recovered/Resolved]
  - Autoimmune lymphoproliferative syndrome [Unknown]
  - Cystitis haemorrhagic [Unknown]
  - Second primary malignancy [Recovered/Resolved]
  - Cytomegalovirus infection [Unknown]
  - Neoplasm progression [Unknown]

NARRATIVE: CASE EVENT DATE: 20141015
